FAERS Safety Report 14619652 (Version 2)
Quarter: 2018Q2

REPORT INFORMATION
  Report Type: Spontaneous
  Country: FR (occurrence: FR)
  Receive Date: 20180309
  Receipt Date: 20180407
  Transmission Date: 20180711
  Serious: Yes (Hospitalization, Other)
  Sender: FDA-Public Use
  Company Number: FR-AUROBINDO-AUR-APL-2018-012213

PATIENT
  Age: 19 Year
  Sex: Male

DRUGS (8)
  1. IFOSFAMIDE. [Concomitant]
     Active Substance: IFOSFAMIDE
     Dosage: UNK (FIVE CURES) ()
     Route: 065
  2. MEROPENEM POWDER FOR SOLUTION FOR INJECTION OR INFUSION [Suspect]
     Active Substance: MEROPENEM
     Indication: PRODUCT USED FOR UNKNOWN INDICATION
     Dosage: ()
     Route: 065
  3. CISPLATIN. [Concomitant]
     Active Substance: CISPLATIN
     Indication: OSTEOSARCOMA
     Dosage: ()
     Route: 065
  4. CISPLATIN. [Concomitant]
     Active Substance: CISPLATIN
     Dosage: UNK (FIVE CURES) ()
     Route: 065
  5. IFOSFAMIDE. [Concomitant]
     Active Substance: IFOSFAMIDE
     Indication: OSTEOSARCOMA
     Dosage: ()
     Route: 065
  6. DOXORUBICIN [Concomitant]
     Active Substance: DOXORUBICIN
     Dosage: UNK (FIVE CURES) ()
     Route: 065
  7. MEROPENEM POWDER FOR SOLUTION FOR INJECTION OR INFUSION [Suspect]
     Active Substance: MEROPENEM
     Dosage: UNK (HIGH DOSES) ()
     Route: 065
  8. DOXORUBICIN [Concomitant]
     Active Substance: DOXORUBICIN
     Indication: OSTEOSARCOMA
     Dosage: ()
     Route: 065

REACTIONS (4)
  - Overdose [Recovering/Resolving]
  - Toxic encephalopathy [Recovering/Resolving]
  - Encephalopathy [Recovering/Resolving]
  - Neurotoxicity [None]
